FAERS Safety Report 5242286-X (Version None)
Quarter: 2007Q1

REPORT INFORMATION
  Report Type: 
  Country: None (occurrence: None)
  Receive Date: 20070216
  Receipt Date: 20070216
  Transmission Date: 20070707
  Serious: Yes (Hospitalization)
  Sender: FDA-Public Use
  Company Number: None

PATIENT
  Age: 68 Year
  Sex: Male
  Weight: 100.2449 kg

DRUGS (3)
  1. FLUOROURACIL [Suspect]
     Indication: PANCREATIC DISORDER
     Dosage: 5540MG, Q3W IV
     Route: 042
     Dates: start: 20060411, end: 20070130
  2. BEVACIZUMAB 5 MG/KG GENENTECH [Suspect]
     Indication: PANCREATIC DISORDER
     Dosage: 525 MG Q3W IV
     Route: 042
     Dates: start: 20060411, end: 20070130
  3. LEUCOVORIN 200MG/M2 BEDFORD LABS AND SICOR [Suspect]
     Indication: PANCREATIC DISORDER
     Dosage: 460 MG Q3W IV
     Route: 042
     Dates: start: 20060401, end: 20070130

REACTIONS (4)
  - BLOOD INSULIN INCREASED [None]
  - DIARRHOEA [None]
  - HYPOGLYCAEMIA [None]
  - NEUROPATHY [None]
